FAERS Safety Report 10767377 (Version 1)
Quarter: 2015Q1

REPORT INFORMATION
  Report Type: Other
  Country: IT (occurrence: IT)
  Receive Date: 20150205
  Receipt Date: 20150205
  Transmission Date: 20150721
  Serious: Yes (Other)
  Sender: FDA-Public Use
  Company Number: IT-MYLANLABS-2015M1002545

PATIENT

DRUGS (1)
  1. RISPERIDONE. [Suspect]
     Active Substance: RISPERIDONE
     Indication: AUTISM
     Dosage: 3 MG, QD
     Route: 048
     Dates: start: 20130901, end: 20130910

REACTIONS (1)
  - No therapeutic response [Recovered/Resolved]

NARRATIVE: CASE EVENT DATE: 20130910
